FAERS Safety Report 7491568-X (Version None)
Quarter: 2011Q2

REPORT INFORMATION
  Report Type: 
  Country: None (occurrence: None)
  Receive Date: 20110519
  Receipt Date: 20110512
  Transmission Date: 20111010
  Serious: Yes (Other)
  Sender: FDA-Public Use
  Company Number: US-JNJFOC-20110506495

PATIENT
  Age: 38 Year
  Sex: Male

DRUGS (2)
  1. LEVAQUIN [Suspect]
     Indication: NASOPHARYNGITIS
     Route: 048
     Dates: start: 20110101, end: 20110101
  2. LEVAQUIN [Suspect]
     Indication: SINUSITIS
     Route: 048
     Dates: start: 20110101, end: 20110101

REACTIONS (1)
  - IDIOPATHIC THROMBOCYTOPENIC PURPURA [None]
